FAERS Safety Report 6182270-5 (Version None)
Quarter: 2009Q2

REPORT INFORMATION
  Report Type: 
  Country: None (occurrence: None)
  Receive Date: 20090505
  Receipt Date: 20090428
  Transmission Date: 20091009
  Serious: Yes (Death)
  Sender: FDA-Public Use
  Company Number: 2009JP002528

PATIENT
  Age: 48 Year
  Sex: Male

DRUGS (7)
  1. FK506 (TACROLIMUS) FORMULATION UNKNOWN [Suspect]
     Indication: LUNG TRANSPLANT
  2. CYCLOSPORINE [Concomitant]
  3. AZATIOPRIN [Concomitant]
  4. GLUCOCORTICOSTEROIDS [Concomitant]
  5. CELLCEPT [Concomitant]
  6. METHYLPREDNISOLONE 16MG TAB [Concomitant]
  7. CORTICOSETEROIDS [Concomitant]

REACTIONS (4)
  - ARRHYTHMIA [None]
  - LUNG INFECTION [None]
  - RENAL FAILURE ACUTE [None]
  - TRANSPLANT REJECTION [None]
